FAERS Safety Report 6235940-4 (Version None)
Quarter: 2009Q2

REPORT INFORMATION
  Report Type: 
  Country: None (occurrence: None)
  Receive Date: 20090619
  Receipt Date: 20090608
  Transmission Date: 20091009
  Serious: Yes (Other)
  Sender: FDA-Public Use
  Company Number: PHHY2009MX22587

PATIENT
  Sex: Male

DRUGS (6)
  1. EXELON [Suspect]
     Indication: DEMENTIA ALZHEIMER'S TYPE
     Dosage: 10 CM2/DAY
     Route: 062
  2. CLONAZEPAM [Concomitant]
     Route: 048
  3. LEXAPRO [Concomitant]
     Indication: DEPRESSION
     Dosage: 1 TABLET/DAY
     Route: 048
  4. MODAFINIL [Concomitant]
     Dosage: I TABLET/DAY
     Route: 048
  5. AKATINOL [Concomitant]
     Dosage: 1 TAABLET/DAY
     Route: 048
  6. EFFORTIL [Concomitant]
     Indication: HYPERTENSION
     Dosage: 30 DRP/DAY

REACTIONS (8)
  - DIZZINESS [None]
  - FALL [None]
  - HYPOTENSION [None]
  - INFLAMMATION [None]
  - LOWER LIMB FRACTURE [None]
  - POLYURIA [None]
  - RASH [None]
  - SCRATCH [None]
